FAERS Safety Report 5633016-8 (Version None)
Quarter: 2008Q1

REPORT INFORMATION
  Report Type: 
  Country: None (occurrence: None)
  Receive Date: 20080221
  Receipt Date: 20080212
  Transmission Date: 20080703
  Serious: Yes (Other)
  Sender: FDA-Public Use
  Company Number: US-BAYER-200715133NA

PATIENT
  Age: 69 Year
  Sex: Male

DRUGS (7)
  1. LEVITRA [Suspect]
     Indication: ERECTILE DYSFUNCTION
     Route: 048
     Dates: start: 20040322
  2. LEVITRA [Suspect]
     Route: 048
     Dates: start: 20050321
  3. LEVITRA [Suspect]
     Route: 048
     Dates: start: 20070322
  4. CLARITIN [Concomitant]
  5. CITRACAL [Concomitant]
  6. FLONASE [Concomitant]
  7. NIACIN [Concomitant]

REACTIONS (1)
  - SUDDEN HEARING LOSS [None]
